FAERS Safety Report 8789360 (Version 1)
Quarter: 2012Q4

REPORT INFORMATION
  Report Type: Spontaneous
  Country: US (occurrence: None)
  Receive Date: 20120910
  Receipt Date: 20120910
  Transmission Date: 20130627
  Serious: Yes (Other)
  Sender: FDA-Public Use
  Company Number: None

PATIENT
  Age: 36 Year
  Sex: Female

DRUGS (2)
  1. SEROQUEL XR [Suspect]
     Indication: BIPOLAR II DISORDER
     Dosage: one po daily
     Route: 048
  2. QUETIAPINE [Suspect]
     Indication: BIPOLAR II DISORDER
     Dosage: one po daily
     Route: 048

REACTIONS (1)
  - Feeling abnormal [None]
